FAERS Safety Report 15711131 (Version 1)
Quarter: 2018Q4

REPORT INFORMATION
  Report Type: Spontaneous
  Country: US (occurrence: US)
  Receive Date: 20181211
  Receipt Date: 20181211
  Transmission Date: 20190205
  Serious: No
  Sender: FDA-Public Use
  Company Number: US-009507513-1811USA005715

PATIENT
  Age: 21 Year
  Sex: Female
  Weight: 68.48 kg

DRUGS (1)
  1. NEXPLANON [Suspect]
     Active Substance: ETONOGESTREL
     Indication: CONTRACEPTION
     Dosage: 1 ROD, LEFT ARM
     Route: 059
     Dates: start: 20140310

REACTIONS (6)
  - Vaginal haemorrhage [Not Recovered/Not Resolved]
  - Laziness [Not Recovered/Not Resolved]
  - Headache [Not Recovered/Not Resolved]
  - Product prescribing error [Unknown]
  - Metrorrhagia [Not Recovered/Not Resolved]
  - Incorrect product administration duration [Unknown]

NARRATIVE: CASE EVENT DATE: 20170310
